FAERS Safety Report 6029449-0 (Version None)
Quarter: 2008Q4

REPORT INFORMATION
  Report Type: 
  Country: None (occurrence: None)
  Receive Date: 20081222
  Receipt Date: 20081020
  Transmission Date: 20090506
  Serious: No
  Sender: FDA-Public Use
  Company Number: ALL1-2008-02469

PATIENT
  Age: 51 Year
  Sex: Female
  Weight: 63.5 kg

DRUGS (1)
  1. VYVANSE [Suspect]
     Indication: DISTURBANCE IN ATTENTION
     Dosage: 30 MG, 1X/DAY:QD, ORAL
     Route: 048
     Dates: start: 20080801, end: 20080801

REACTIONS (5)
  - ANXIETY [None]
  - FEELING ABNORMAL [None]
  - HEART RATE INCREASED [None]
  - MYDRIASIS [None]
  - PSYCHOMOTOR HYPERACTIVITY [None]
